FAERS Safety Report 6133163-0 (Version None)
Quarter: 2009Q1

REPORT INFORMATION
  Report Type: 
  Country: None (occurrence: None)
  Receive Date: 20090325
  Receipt Date: 20090325
  Transmission Date: 20090719
  Serious: Yes (Life-Threatening, Hospitalization)
  Sender: FDA-Public Use
  Company Number: None

PATIENT
  Age: 44 Year
  Sex: Female
  Weight: 73.4827 kg

DRUGS (1)
  1. CLEOCIN HYDROCHLORIDE [Suspect]

REACTIONS (1)
  - ANAPHYLACTIC SHOCK [None]
